FAERS Safety Report 9517975 (Version 2)
Quarter: 2014Q1

REPORT INFORMATION
  Report Type: Spontaneous
  Country: US (occurrence: None)
  Receive Date: 20130305
  Receipt Date: 20140306
  Transmission Date: 20141002
  Serious: Yes (Other)
  Sender: FDA-Public Use
  Company Number: 163-21880-12120943

PATIENT
  Age: 77 Year
  Sex: Female
  Weight: 81.2 kg

DRUGS (18)
  1. REVLIMID (LENALIDOMIDE) (CAPSULES) [Suspect]
     Indication: PLASMA CELL MYELOMA
     Dosage: 10 MG, 1 IN 1 D, PO
     Route: 048
     Dates: start: 201005
  2. COUMADIN (WARFARIN SODIUM) [Concomitant]
  3. DECADRON (DEXAMETHASONE) [Concomitant]
  4. AREDIA (PAMIDRONATE DISODIUM) [Concomitant]
  5. B-12 (CYANOCOBALAMIN) [Concomitant]
  6. SIMVASTATIN [Concomitant]
  7. PREVACID (LANSOPRAZOLE) [Concomitant]
  8. FLONASE (FLUTICASONE PROPIONATE) [Concomitant]
  9. TYLENOL-CODEINE NO.3 (PANADEINE CO) [Concomitant]
  10. HYDROCORTISONE ACETATE [Concomitant]
  11. CLARITIN (LORATADINE) [Concomitant]
  12. VITAMIN D (ERGOCALCIFEROL) [Concomitant]
  13. VITAMIN B6 (PYRIDOXINE HYDROCHLORIDE) [Concomitant]
  14. LOSARTAN/HYDROCHLOROTHIAZIDE (HYZAAR) [Concomitant]
  15. OCUVITE [Concomitant]
  16. FLAGYL (METRONIDAZOLE) [Concomitant]
  17. IMODIUM A-D (LOPERAMIDE HYDROCHLORIDE) [Concomitant]
  18. CYANOCOBALAMIN [Concomitant]

REACTIONS (6)
  - Thrombosis [None]
  - Influenza [None]
  - Blood potassium decreased [None]
  - Muscle spasms [None]
  - Deep vein thrombosis [None]
  - Diarrhoea [None]
